FAERS Safety Report 5234688-2 (Version None)
Quarter: 2007Q1

REPORT INFORMATION
  Report Type: 
  Country: None (occurrence: None)
  Receive Date: 20070209
  Receipt Date: 20070131
  Transmission Date: 20070707
  Serious: Yes (Hospitalization)
  Sender: FDA-Public Use
  Company Number: DE-ABBOTT-06P-062-0354218-00

PATIENT
  Sex: Male
  Weight: 56 kg

DRUGS (4)
  1. ZEMPLAR [Suspect]
     Indication: HYPERPARATHYROIDISM SECONDARY
     Route: 042
     Dates: start: 20060629, end: 20060919
  2. ZEMPLAR [Suspect]
     Route: 042
     Dates: start: 20061124, end: 20061218
  3. ZEMPLAR [Suspect]
     Dates: start: 20061218
  4. HEPARIN [Suspect]
     Indication: DIALYSIS

REACTIONS (8)
  - ARACHNOID CYST [None]
  - BRAIN COMPRESSION [None]
  - BRAIN OEDEMA [None]
  - CONDITION AGGRAVATED [None]
  - EPILEPSY [None]
  - FALL [None]
  - SOMNOLENCE [None]
  - SUBDURAL HAEMATOMA [None]
